FAERS Safety Report 23419026 (Version 1)
Quarter: 2024Q1

REPORT INFORMATION
  Report Type: Other
  Country: US (occurrence: US)
  Receive Date: 20240118
  Receipt Date: 20240118
  Transmission Date: 20240410
  Serious: No
  Sender: FDA-Public Use
  Company Number: US-UROVANT SCIENCES GMBH-202312-URV-002399

PATIENT
  Age: 75 Year
  Sex: Female
  Weight: 64.172 kg

DRUGS (2)
  1. GEMTESA [Suspect]
     Active Substance: VIBEGRON
     Indication: Urinary incontinence
     Dosage: 75 MG, QD
     Route: 065
     Dates: start: 20231018, end: 202312
  2. GEMTESA [Suspect]
     Active Substance: VIBEGRON
     Indication: Cystocele

REACTIONS (1)
  - Product availability issue [Unknown]

NARRATIVE: CASE EVENT DATE: 20231201
